FAERS Safety Report 15723786 (Version 3)
Quarter: 2019Q3

REPORT INFORMATION
  Report Type: Spontaneous
  Country: US (occurrence: US)
  Receive Date: 20181214
  Receipt Date: 20190919
  Transmission Date: 20191004
  Serious: No
  Sender: FDA-Public Use
  Company Number: US-ACTELION-A-US2018-183439

PATIENT
  Age: 72 Year
  Sex: Female

DRUGS (11)
  1. FAMOTIDINE. [Concomitant]
     Active Substance: FAMOTIDINE
     Dosage: 40 MG, BID
  2. ASPIRIN. [Concomitant]
     Active Substance: ASPIRIN
     Dosage: 81 MG, QD
     Dates: start: 2010
  3. LIPITOR [Concomitant]
     Active Substance: ATORVASTATIN CALCIUM
  4. BIOTIN [Concomitant]
     Active Substance: BIOTIN
     Dosage: 5000 MG, BID
     Dates: start: 2017
  5. CLARITIN [Concomitant]
     Active Substance: LORATADINE
     Dosage: 10 MG, QD
  6. SERTRALINE [Concomitant]
     Active Substance: SERTRALINE HYDROCHLORIDE
     Dosage: 50 MG, 1/2 TAB QD
     Dates: start: 2013
  7. OPSUMIT [Suspect]
     Active Substance: MACITENTAN
     Indication: SYSTEMIC SCLERODERMA
     Dosage: 10 MG, UNK
     Route: 048
     Dates: start: 201810
  8. NIFEDIPINE. [Concomitant]
     Active Substance: NIFEDIPINE
     Dosage: 30 MG, QD
     Dates: start: 2018
  9. LOVASTATIN. [Concomitant]
     Active Substance: LOVASTATIN
     Dosage: 10 MG, QD
     Dates: start: 2010
  10. LYRICA [Concomitant]
     Active Substance: PREGABALIN
     Dosage: 75 MG, BID
     Dates: start: 2017
  11. VITAMIN D2 [Concomitant]
     Active Substance: ERGOCALCIFEROL
     Dosage: 50000 MG, Q1WEEK
     Dates: start: 201808

REACTIONS (5)
  - Muscle spasms [Unknown]
  - Pain in extremity [Recovered/Resolved]
  - Unevaluable event [Not Recovered/Not Resolved]
  - Tremor [Unknown]
  - Peripheral swelling [Recovered/Resolved]

NARRATIVE: CASE EVENT DATE: 201810
